FAERS Safety Report 24323936 (Version 1)
Quarter: 2024Q3

REPORT INFORMATION
  Report Type: Spontaneous
  Country: US (occurrence: US)
  Receive Date: 20240916
  Receipt Date: 20240916
  Transmission Date: 20241017
  Serious: No
  Sender: ROCHE
  Company Number: US-ROCHE-10000076615

PATIENT
  Age: 59 Year
  Sex: Female

DRUGS (2)
  1. ALECENSA [Suspect]
     Active Substance: ALECTINIB HYDROCHLORIDE
     Indication: Abdominal pain upper
     Route: 048
  2. AZITHROMYCIN [Interacting]
     Active Substance: AZITHROMYCIN
     Indication: Ear infection
     Route: 065

REACTIONS (5)
  - Off label use [Unknown]
  - Drug interaction [Unknown]
  - Ear swelling [Unknown]
  - Middle ear effusion [Unknown]
  - Ear infection [Unknown]
